FAERS Safety Report 11560665 (Version 1)
Quarter: 2015Q3

REPORT INFORMATION
  Report Type: Spontaneous
  Country: US (occurrence: US)
  Receive Date: 20150916
  Receipt Date: 20150916
  Transmission Date: 20151125
  Serious: No
  Sender: FDA-Public Use
  Company Number: US-ELI_LILLY_AND_COMPANY-US200810001247

PATIENT
  Sex: Female

DRUGS (4)
  1. FORTEO [Suspect]
     Active Substance: TERIPARATIDE
     Indication: ARTHROPATHY
     Dates: start: 200802
  2. MIACALCIN [Concomitant]
     Active Substance: CALCITONIN SALMON
     Dates: end: 200802
  3. ACTONEL [Concomitant]
     Active Substance: RISEDRONATE SODIUM
     Dates: end: 200802
  4. ZOCOR [Concomitant]
     Active Substance: SIMVASTATIN
     Indication: BLOOD CHOLESTEROL INCREASED

REACTIONS (10)
  - Arthritis [Unknown]
  - Pain [Unknown]
  - Feeling abnormal [Unknown]
  - Influenza like illness [Unknown]
  - Constipation [Unknown]
  - Malaise [Unknown]
  - Injection site bruising [Recovered/Resolved]
  - Injection site pain [Recovered/Resolved]
  - Fatigue [Unknown]
  - Injection site haemorrhage [Recovered/Resolved]
